FAERS Safety Report 20849610 (Version 6)
Quarter: 2022Q2

REPORT INFORMATION
  Report Type: Report from Study
  Country: EG (occurrence: EG)
  Receive Date: 20220519
  Receipt Date: 20220616
  Transmission Date: 20220721
  Serious: Yes (Other)
  Sender: FDA-Public Use
  Company Number: EG-JNJFOC-20220517583

PATIENT
  Age: 39 Year
  Sex: Female

DRUGS (2)
  1. ESKETAMINE [Suspect]
     Active Substance: ESKETAMINE
     Indication: Product used for unknown indication
     Dosage: 7 PREVIOUS SESSIONS
     Dates: start: 20220411
  2. ESKETAMINE [Suspect]
     Active Substance: ESKETAMINE
     Dosage: 8TH SESSION, RECENT
     Dates: start: 20220507

REACTIONS (9)
  - Depressed level of consciousness [Recovered/Resolved]
  - Hypokinesia [Recovered/Resolved]
  - Device failure [Unknown]
  - Underdose [Unknown]
  - Vertigo [Recovered/Resolved]
  - Dysgeusia [Recovered/Resolved]
  - Depression [Not Recovered/Not Resolved]
  - Drug ineffective [Unknown]
  - Product dose omission issue [Unknown]

NARRATIVE: CASE EVENT DATE: 20220411
